FAERS Safety Report 4403506-4 (Version None)
Quarter: 2004Q3

REPORT INFORMATION
  Report Type: 
  Country: None (occurrence: None)
  Receive Date: 20040719
  Receipt Date: 20040712
  Transmission Date: 20050211
  Serious: Yes (Other)
  Sender: FDA-Public Use
  Company Number: S04-USA-03800-01

PATIENT
  Age: 76 Year
  Sex: Male

DRUGS (3)
  1. NAMENDA [Suspect]
     Dosage: 10 MG BID PO
     Route: 048
  2. DIURETIC [Concomitant]
  3. ACE INHIBITOR [Concomitant]

REACTIONS (2)
  - CARDIAC FAILURE [None]
  - CONDITION AGGRAVATED [None]
